FAERS Safety Report 9921399 (Version 2)
Quarter: 2014Q3

REPORT INFORMATION
  Report Type: Spontaneous
  Country: TW (occurrence: TW)
  Receive Date: 20140225
  Receipt Date: 20140905
  Transmission Date: 20150326
  Serious: Yes (Other)
  Sender: FDA-Public Use
  Company Number: TW-JNJFOC-20140209202

PATIENT
  Age: 44 Year
  Sex: Male
  Weight: 58 kg

DRUGS (16)
  1. STELARA [Suspect]
     Active Substance: USTEKINUMAB
     Indication: ERYTHRODERMIC PSORIASIS
     Route: 058
     Dates: start: 20131121
  2. STELARA [Suspect]
     Active Substance: USTEKINUMAB
     Indication: ERYTHRODERMIC PSORIASIS
     Route: 058
     Dates: start: 20130606
  3. STELARA [Suspect]
     Active Substance: USTEKINUMAB
     Indication: ERYTHRODERMIC PSORIASIS
     Route: 058
     Dates: start: 20121115
  4. STELARA [Suspect]
     Active Substance: USTEKINUMAB
     Indication: ERYTHRODERMIC PSORIASIS
     Route: 058
     Dates: start: 20130314
  5. XAMIOL [Concomitant]
     Active Substance: BETAMETHASONE DIPROPIONATE\CALCIPOTRIENE HYDRATE
     Dosage: CALCIPOTRIOL 50MCG BETAMETHASONE 0.5MG/GM 1PC
     Route: 061
  6. FLUOCINOLONE [Concomitant]
     Active Substance: FLUOCINOLONE
     Dosage: TUBE
     Route: 061
  7. DAIVOBET [Concomitant]
     Active Substance: BETAMETHASONE DIPROPIONATE\CALCIPOTRIENE
     Dosage: CALCIPOTRIOL 50MCG BETAMETHASONE 0.5MG/GM 4PC
     Route: 061
  8. POLYTAR EMOLLIENT [Concomitant]
     Dosage: 1 PC
     Route: 061
  9. STELARA [Suspect]
     Active Substance: USTEKINUMAB
     Indication: ERYTHRODERMIC PSORIASIS
     Route: 058
     Dates: start: 2014
  10. FEXOFENADINE [Concomitant]
     Active Substance: FEXOFENADINE\FEXOFENADINE HYDROCHLORIDE
     Dosage: TUBE
     Route: 048
  11. STELARA [Suspect]
     Active Substance: USTEKINUMAB
     Indication: ERYTHRODERMIC PSORIASIS
     Dosage: APPROXIMATE TOTAL NUMBERS OF INJECTIONS RECEIVED 8
     Route: 058
     Dates: start: 20121213, end: 20140828
  12. FRADIOMYCIN [Concomitant]
     Dosage: TUBE
     Route: 061
  13. POLYTAR EMOLLIENT [Concomitant]
     Dosage: 1 PC
     Route: 061
  14. STELARA [Suspect]
     Active Substance: USTEKINUMAB
     Indication: ERYTHRODERMIC PSORIASIS
     Route: 058
     Dates: start: 20130829
  15. HYDROCORTISONE. [Concomitant]
     Active Substance: HYDROCORTISONE
     Route: 061
  16. NEOSTRATA [Concomitant]
     Route: 065

REACTIONS (2)
  - Latent tuberculosis [Recovered/Resolved]
  - Off label use [Unknown]

NARRATIVE: CASE EVENT DATE: 20121115
